FAERS Safety Report 15074877 (Version 1)
Quarter: 2018Q2

REPORT INFORMATION
  Report Type: Spontaneous
  Country: US (occurrence: US)
  Receive Date: 20180627
  Receipt Date: 20180627
  Transmission Date: 20180711
  Serious: No
  Sender: FDA-Public Use
  Company Number: US-SAOL THERAPEUTICS-2017SAO01376

PATIENT
  Sex: Female
  Weight: 48 kg

DRUGS (2)
  1. LIORESAL [Suspect]
     Active Substance: BACLOFEN
     Indication: MUSCLE SPASTICITY
     Dosage: 0.5 MG, UNK
  2. LIORESAL [Suspect]
     Active Substance: BACLOFEN
     Route: 037

REACTIONS (6)
  - Frequent bowel movements [Unknown]
  - Malaise [Recovering/Resolving]
  - Dizziness [Unknown]
  - Headache [Unknown]
  - Hypotonia [Unknown]
  - Muscle spasticity [Unknown]

NARRATIVE: CASE EVENT DATE: 2017
